FAERS Safety Report 10308773 (Version 2)
Quarter: 2014Q3

REPORT INFORMATION
  Report Type: Spontaneous
  Country: IL (occurrence: IL)
  Receive Date: 20140716
  Receipt Date: 20140716
  Transmission Date: 20150326
  Serious: Yes (Other)
  Sender: FDA-Public Use
  Company Number: IL-GILEAD-2014-0104855

PATIENT
  Age: 19 Year
  Sex: Female

DRUGS (8)
  1. CAYSTON [Suspect]
     Active Substance: AZTREONAM
     Indication: CYSTIC FIBROSIS
     Dosage: 1 CYCLE
     Route: 065
     Dates: start: 201405
  2. KARIN [Concomitant]
     Dosage: 500 MG, BID, TABLET
  3. COLIRACIN [Concomitant]
     Dosage: UNK, BID
     Route: 055
  4. ITRACONAZOLE. [Concomitant]
     Active Substance: ITRACONAZOLE
     Dosage: 200 MG, BID, TABLET
  5. LOSEC                              /00661201/ [Concomitant]
     Dosage: 40 MG, QD, TABLET
  6. PULMOZYME [Concomitant]
     Active Substance: DORNASE ALFA
     Dosage: 2.5 MG, UNK
     Route: 055
  7. VITAMIN D [Concomitant]
     Active Substance: CHOLECALCIFEROL
     Dosage: 1000 UNITS
  8. DOXY                               /00055701/ [Concomitant]
     Dosage: 100 MG, QD, TABLET

REACTIONS (2)
  - Arthralgia [Recovered/Resolved]
  - Arthralgia [Unknown]
